FAERS Safety Report 10726345 (Version 3)
Quarter: 2015Q1

REPORT INFORMATION
  Report Type: Spontaneous
  Country: US (occurrence: US)
  Receive Date: 20150121
  Receipt Date: 20150227
  Transmission Date: 20150721
  Serious: Yes (Other)
  Sender: FDA-Public Use
  Company Number: US-PFIZER INC-2015021480

PATIENT
  Age: 66 Year
  Sex: Male
  Weight: 93 kg

DRUGS (6)
  1. DIAZEPAM. [Concomitant]
     Active Substance: DIAZEPAM
     Dosage: 10 MG, ONE TO FOUR TIMES DAILY AS NEEDED
  2. SIMVASTATIN. [Concomitant]
     Active Substance: SIMVASTATIN
     Indication: BLOOD CHOLESTEROL ABNORMAL
     Dosage: 40 MG, 1X/DAY
     Route: 048
  3. CARVEDILOL. [Concomitant]
     Active Substance: CARVEDILOL
     Indication: BLOOD PRESSURE ABNORMAL
     Dosage: 3.25 MG, 2X/DAY
     Route: 048
  4. TRAZODONE [Concomitant]
     Active Substance: TRAZODONE HYDROCHLORIDE
     Indication: SLEEP DISORDER THERAPY
     Dosage: 50 MG, ONE TO THREE TABLETS, AT BEDTIME, AS NEEDED
     Route: 048
  5. LYRICA [Suspect]
     Active Substance: PREGABALIN
     Indication: FIBROMYALGIA
     Dosage: 200 MG, 1X/DAY (FOUR 50MG CAPSULES, ONCE A DAY)
     Route: 048
  6. LYRICA [Suspect]
     Active Substance: PREGABALIN
     Dosage: 200 MG, 1X/DAY (TWO 100MG CAPSULES, 1X/DAY)
     Route: 048

REACTIONS (15)
  - Muscle strain [Unknown]
  - Blood cholesterol abnormal [Unknown]
  - Accident [Unknown]
  - Sleep disorder [Unknown]
  - Blood pressure increased [Unknown]
  - Joint injury [Unknown]
  - Pain [Not Recovered/Not Resolved]
  - Pain [Unknown]
  - Hip fracture [Unknown]
  - Arthralgia [Unknown]
  - Fatigue [Unknown]
  - Gait disturbance [Unknown]
  - Upper limb fracture [Unknown]
  - Wheelchair user [Unknown]
  - Drug withdrawal syndrome [Unknown]

NARRATIVE: CASE EVENT DATE: 201402
